FAERS Safety Report 7685873-1 (Version None)
Quarter: 2011Q3

REPORT INFORMATION
  Report Type: 
  Country: None (occurrence: None)
  Receive Date: 20110816
  Receipt Date: 20110808
  Transmission Date: 20111222
  Serious: Yes (Hospitalization, Other)
  Sender: FDA-Public Use
  Company Number: US-BAYER-201022323NA

PATIENT
  Age: 29 Year
  Sex: Female
  Weight: 96.599 kg

DRUGS (9)
  1. YASMIN [Suspect]
     Indication: POLYCYSTIC OVARIES
     Dosage: UNK UNK, QD
     Route: 048
     Dates: start: 20070801, end: 20071001
  2. METFORMIN HCL [Concomitant]
     Dosage: 500 MG, HS
  3. YASMIN [Suspect]
     Indication: DYSFUNCTIONAL UTERINE BLEEDING
  4. ZITHROMAX [Concomitant]
  5. BLACK COHOSH [Concomitant]
  6. GLYBURIDE [Concomitant]
  7. ASPIRIN [Concomitant]
  8. ASPIRIN [Concomitant]
     Dosage: 81 MG, QD
  9. MEDROXYPROGESTERONE [Concomitant]

REACTIONS (9)
  - RENAL INFARCT [None]
  - ABDOMINAL PAIN [None]
  - RENAL ARTERY THROMBOSIS [None]
  - SPLENIC VEIN THROMBOSIS [None]
  - SPLENIC INFARCTION [None]
  - DEEP VEIN THROMBOSIS [None]
  - NAUSEA [None]
  - DIARRHOEA [None]
  - VOMITING [None]
